FAERS Safety Report 5336211-0 (Version None)
Quarter: 2007Q2

REPORT INFORMATION
  Report Type: 
  Country: None (occurrence: None)
  Receive Date: 20070315
  Receipt Date: 20070105
  Transmission Date: 20071010
  Serious: No
  Sender: FDA-Public Use
  Company Number: BDI-008998

PATIENT
  Age: 50 Year
  Sex: Male
  Weight: 95.45 kg

DRUGS (2)
  1. MULTIHANCE [Suspect]
     Indication: HEADACHE
     Dosage: 20 ML ONCE IV
     Route: 042
     Dates: start: 20070105, end: 20070105
  2. MULTIHANCE [Suspect]
     Indication: NUCLEAR MAGNETIC RESONANCE IMAGING BRAIN
     Dosage: 20 ML ONCE IV
     Route: 042
     Dates: start: 20070105, end: 20070105

REACTIONS (3)
  - DIZZINESS [None]
  - NAUSEA [None]
  - URTICARIA [None]
